FAERS Safety Report 21088756 (Version 1)
Quarter: 2022Q3

REPORT INFORMATION
  Report Type: Spontaneous
  Country: ES (occurrence: ES)
  Receive Date: 20220715
  Receipt Date: 20220715
  Transmission Date: 20221026
  Serious: Yes (Other)
  Sender: FDA-Public Use
  Company Number: None

PATIENT
  Age: 61 Year
  Sex: Male
  Weight: 110 kg

DRUGS (1)
  1. ALDACTONE [Suspect]
     Active Substance: SPIRONOLACTONE
     Indication: Hypertension
     Dosage: 0.5 DF, DAILY
     Route: 048
     Dates: start: 20210607

REACTIONS (1)
  - Ejaculation disorder [Recovering/Resolving]

NARRATIVE: CASE EVENT DATE: 20210607
